FAERS Safety Report 4430157-8 (Version None)
Quarter: 2004Q3

REPORT INFORMATION
  Report Type: 
  Country: None (occurrence: None)
  Receive Date: 20040816
  Receipt Date: 20040726
  Transmission Date: 20050211
  Serious: Yes (Hospitalization)
  Sender: FDA-Public Use
  Company Number: 6009802

PATIENT
  Age: 43 Year
  Sex: Female

DRUGS (4)
  1. METFORMIN HCL [Suspect]
     Dosage: 2550 MG ORAL
     Route: 048
     Dates: end: 20040430
  2. COVERSYL (TABLETS) (PERINDOPRIL) [Suspect]
     Dosage: 4 MG ORAL
     Route: 048
     Dates: start: 20020101, end: 20040430
  3. GLYBURIDE [Suspect]
     Dosage: ORAL
     Route: 048
     Dates: start: 20020101, end: 20040430
  4. TENORDATE (CAPSULES) (NIFEDIPINE, ATENOLOL) [Suspect]
     Dosage: ORAL
     Route: 048
     Dates: start: 20020101, end: 20040430

REACTIONS (5)
  - ANAESTHETIC COMPLICATION [None]
  - ANTIBODY TEST POSITIVE [None]
  - CARDIAC ARREST [None]
  - PANCREATITIS HAEMORRHAGIC [None]
  - PANCREATITIS NECROTISING [None]
